FAERS Safety Report 12113185 (Version 1)
Quarter: 2016Q1

REPORT INFORMATION
  Report Type: Spontaneous
  Country: FR (occurrence: FR)
  Receive Date: 20160225
  Receipt Date: 20160225
  Transmission Date: 20160526
  Serious: Yes (Hospitalization)
  Sender: FDA-Public Use
  Company Number: FR-ASTRAZENECA-2016SE18279

PATIENT
  Age: 21473 Day
  Sex: Male

DRUGS (3)
  1. XEROQUEL [Suspect]
     Active Substance: QUETIAPINE FUMARATE
     Route: 048
  2. LORMETAZEPAM [Concomitant]
     Active Substance: LORMETAZEPAM
     Route: 048
  3. TERCIAN [Suspect]
     Active Substance: CYAMEMAZINE
     Route: 048

REACTIONS (8)
  - Aortic aneurysm [Unknown]
  - Hepatic cyst [Unknown]
  - Platelet count increased [Unknown]
  - Pulmonary embolism [Recovered/Resolved]
  - Normochromic normocytic anaemia [Unknown]
  - Blood folate decreased [Unknown]
  - Deep vein thrombosis [Recovered/Resolved]
  - Renal cyst [Unknown]

NARRATIVE: CASE EVENT DATE: 20151108
